FAERS Safety Report 10403551 (Version 2)
Quarter: 2014Q4

REPORT INFORMATION
  Report Type: Spontaneous
  Country: AU (occurrence: AU)
  Receive Date: 20140822
  Receipt Date: 20141024
  Transmission Date: 20150528
  Serious: Yes (Hospitalization)
  Sender: FDA-Public Use
  Company Number: AU-009507513-1408AUS012012

PATIENT
  Sex: Male

DRUGS (2)
  1. JANUMET [Suspect]
     Active Substance: METFORMIN HYDROCHLORIDE\SITAGLIPTIN PHOSPHATE
     Dosage: 1 DF, BID
     Route: 048
     Dates: start: 20140820
  2. JANUMET [Suspect]
     Active Substance: METFORMIN HYDROCHLORIDE\SITAGLIPTIN PHOSPHATE
     Dosage: 1 TABLET TWICE A DAY
     Route: 048
     Dates: start: 20140807, end: 201408

REACTIONS (3)
  - Blood glucose decreased [Unknown]
  - Drug dose omission [Unknown]
  - Urinary tract infection [Recovered/Resolved]

NARRATIVE: CASE EVENT DATE: 201408
